FAERS Safety Report 21208299 (Version 1)
Quarter: 2022Q3

REPORT INFORMATION
  Report Type: Spontaneous
  Country: US (occurrence: US)
  Receive Date: 20220812
  Receipt Date: 20220812
  Transmission Date: 20221027
  Serious: Yes (Other)
  Sender: FDA-Public Use
  Company Number: US-PFIZER INC-202201052496

PATIENT
  Age: 46 Year
  Sex: Male

DRUGS (2)
  1. INLYTA [Suspect]
     Active Substance: AXITINIB
     Dosage: 3 MG, 2X/DAY (TAKE 3 TABLETS (3 MG) TWICE DAILY)
     Dates: start: 202201
  2. KEYTRUDA [Suspect]
     Active Substance: PEMBROLIZUMAB
     Dosage: UNK

REACTIONS (7)
  - Oxygen saturation decreased [Unknown]
  - Epistaxis [Recovered/Resolved]
  - Lung disorder [Recovering/Resolving]
  - Dyspnoea [Not Recovered/Not Resolved]
  - Back pain [Not Recovered/Not Resolved]
  - Dehydration [Unknown]
  - Weight decreased [Not Recovered/Not Resolved]
